FAERS Safety Report 9188427 (Version 1)
Quarter: 2012Q4

REPORT INFORMATION
  Report Type: 
  Country: US (occurrence: US)
  Receive Date: 20121205
  Receipt Date: 20121205
  Transmission Date: 20130627
  Serious: Yes (Other)
  Sender: FDA-Public Use
  Company Number: PHEH2012US023790

PATIENT
  Age: 55 None
  Sex: Male

DRUGS (4)
  1. GILENYA [Suspect]
     Indication: MULTIPLE SCLEROSIS
     Dosage: 0.5 mg, QD
     Route: 048
     Dates: start: 20120706
  2. BACLOFEN [Concomitant]
     Dosage: UNK UKN, UNK
  3. NAPROXEN [Concomitant]
     Dosage: UNK UKN, UNK
  4. TEGRETOL [Concomitant]
     Dosage: UNK UKN, UNK

REACTIONS (1)
  - Heart rate irregular [Not Recovered/Not Resolved]
